FAERS Safety Report 10591745 (Version 3)
Quarter: 2015Q1

REPORT INFORMATION
  Report Type: Spontaneous
  Country: US (occurrence: US)
  Receive Date: 20141118
  Receipt Date: 20150202
  Transmission Date: 20150720
  Serious: No
  Sender: FDA-Public Use
  Company Number: US-GLAXOSMITHKLINE-US2014GSK021771

PATIENT
  Sex: Male
  Weight: 72.1 kg

DRUGS (6)
  1. VOTRIENT [Suspect]
     Active Substance: PAZOPANIB HYDROCHLORIDE
     Indication: RENAL CANCER
     Dosage: 800 MG, QD
     Route: 048
     Dates: start: 201408
  2. VOTRIENT [Suspect]
     Active Substance: PAZOPANIB HYDROCHLORIDE
     Indication: RENAL CELL CARCINOMA
     Dosage: 800 MG, QD
     Route: 048
     Dates: start: 20140828
  3. PROCHLORPERAZINE MALEATE. [Concomitant]
     Active Substance: PROCHLORPERAZINE MALEATE
  4. SIMVASTATIN. [Concomitant]
     Active Substance: SIMVASTATIN
  5. LORAZEPAM. [Concomitant]
     Active Substance: LORAZEPAM
  6. LOSARTAN [Concomitant]
     Active Substance: LOSARTAN

REACTIONS (9)
  - Hair colour changes [Unknown]
  - Diarrhoea [Recovering/Resolving]
  - Nail disorder [Recovering/Resolving]
  - Biopsy [Unknown]
  - Wound [Unknown]
  - Therapeutic response unexpected [Unknown]
  - Dysphonia [Recovering/Resolving]
  - Palmar-plantar erythrodysaesthesia syndrome [Unknown]
  - Skin discolouration [Unknown]
